FAERS Safety Report 8941855 (Version 2)
Quarter: 2012Q4

REPORT INFORMATION
  Report Type: Report from Study
  Country: AT (occurrence: AT)
  Receive Date: 20121203
  Receipt Date: 20121217
  Transmission Date: 20130627
  Serious: Yes (Hospitalization)
  Sender: FDA-Public Use
  Company Number: PHHO2012AT017144

PATIENT
  Age: 65 Year
  Sex: Male

DRUGS (11)
  1. BLINDED ALISKIREN [Suspect]
     Indication: CARDIAC FAILURE
     Dosage: UNK
     Dates: start: 20110901
  2. BLINDED ENALAPRIL [Suspect]
     Indication: CARDIAC FAILURE
     Dosage: UNK
     Dates: start: 20110901
  3. BLINDED NO TREATMENT RECEIVED [Suspect]
     Indication: CARDIAC FAILURE
     Dosage: UNK
     Dates: start: 20110901
  4. SEDACORON [Suspect]
     Indication: PROPHYLAXIS
     Dosage: 400 mg, QD
     Route: 048
     Dates: start: 20111203
  5. SEDACORON [Suspect]
     Dosage: 200 mg, BID
     Route: 048
  6. SEDACORON [Suspect]
     Dosage: 400 mg, QD
     Route: 048
  7. TORASEMID [Concomitant]
     Indication: CARDIAC FAILURE
     Dosage: 20 mg, BID
     Route: 048
     Dates: start: 20111008
  8. SIMVASTATIN [Concomitant]
     Indication: HYPERCHOLESTEROLAEMIA
     Dosage: 20 mg, QD
     Route: 048
     Dates: start: 20110112, end: 20121126
  9. BICALUTAMID [Concomitant]
     Indication: NEOPLASM PROSTATE
     Dosage: 50 mg, QD
     Route: 048
     Dates: start: 20061207, end: 20121126
  10. UROSIN [Concomitant]
     Indication: HYPERURICAEMIA
     Dosage: 150 mg, QD
     Route: 048
     Dates: start: 20110527, end: 20121126
  11. ONGLYZA [Concomitant]
     Indication: DIABETES MELLITUS
     Dosage: 5 mg, QD
     Route: 048
     Dates: start: 20111213

REACTIONS (1)
  - Non-alcoholic steatohepatitis [Not Recovered/Not Resolved]
